FAERS Safety Report 4757393-5 (Version None)
Quarter: 2005Q3

REPORT INFORMATION
  Report Type: 
  Country: None (occurrence: None)
  Receive Date: 20050829
  Receipt Date: 20050818
  Transmission Date: 20060218
  Serious: Yes (Other)
  Sender: FDA-Public Use
  Company Number: 2005063969

PATIENT
  Age: 72 Year
  Sex: Female
  Weight: 113.3993 kg

DRUGS (10)
  1. NORVASC [Suspect]
     Indication: HYPERTENSION
     Dosage: 10 MG (10 MG, 1 IN 1 D), ORAL
     Dates: start: 20040406
  2. SYNTHROID [Concomitant]
  3. ECOTRIN (ACETYLSALICYLIC ACID) [Concomitant]
  4. ALTACE [Concomitant]
  5. PLAVIX [Concomitant]
  6. FOSAMAX [Concomitant]
  7. TOPROL-XL [Concomitant]
  8. PAXIL [Concomitant]
  9. BEXTRA [Concomitant]
  10. DYAZIDE [Concomitant]

REACTIONS (6)
  - CONSTIPATION [None]
  - DIFFICULTY IN WALKING [None]
  - HEADACHE [None]
  - JOINT SWELLING [None]
  - NEPHROLITHIASIS [None]
  - OEDEMA PERIPHERAL [None]
